FAERS Safety Report 18394226 (Version 1)
Quarter: 2020Q4

REPORT INFORMATION
  Report Type: Spontaneous
  Country: SE (occurrence: SE)
  Receive Date: 20201017
  Receipt Date: 20201017
  Transmission Date: 20210114
  Serious: Yes (Other)
  Sender: FDA-Public Use
  Company Number: SE-LUPIN PHARMACEUTICALS INC.-2020-03079

PATIENT
  Age: 47 Year
  Sex: Female

DRUGS (1)
  1. TRAMADOL. [Suspect]
     Active Substance: TRAMADOL
     Indication: PRODUCT USED FOR UNKNOWN INDICATION
     Dosage: UNK
     Route: 065

REACTIONS (7)
  - Hyperacusis [Unknown]
  - Hyperhidrosis [Unknown]
  - Asthenia [Unknown]
  - Headache [Unknown]
  - Tremor [Unknown]
  - Syncope [Unknown]
  - Feeling cold [Unknown]
